FAERS Safety Report 10128453 (Version 2)
Quarter: 2014Q2

REPORT INFORMATION
  Report Type: Spontaneous
  Country: US (occurrence: US)
  Receive Date: 20140428
  Receipt Date: 20140502
  Transmission Date: 20141212
  Serious: No
  Sender: FDA-Public Use
  Company Number: US-009507513-1404USA013681

PATIENT
  Sex: 0

DRUGS (1)
  1. EMEND FOR INJECTION [Suspect]
     Route: 042

REACTIONS (1)
  - Phlebitis [Unknown]
